FAERS Safety Report 4551802-2 (Version None)
Quarter: 2005Q1

REPORT INFORMATION
  Report Type: 
  Country: None (occurrence: None)
  Receive Date: 20050110
  Receipt Date: 20050103
  Transmission Date: 20050727
  Serious: Yes (Death)
  Sender: FDA-Public Use
  Company Number: 2005001309

PATIENT
  Age: 51 Year
  Sex: Female

DRUGS (1)
  1. SORTIS (ATORVASTATIN) [Suspect]
     Indication: ILL-DEFINED DISORDER
     Dosage: 80 MG, ORAL
     Route: 048

REACTIONS (1)
  - HEPATIC FAILURE [None]
